FAERS Safety Report 17843751 (Version 3)
Quarter: 2020Q3

REPORT INFORMATION
  Report Type: Report from Study
  Country: None (occurrence: AU)
  Receive Date: 20200531
  Receipt Date: 20200718
  Transmission Date: 20201103
  Serious: Yes (Hospitalization)
  Sender: FDA-Public Use
  Company Number: AU-ABBVIE-20K-008-3423960-00

PATIENT
  Age: 39 Year
  Sex: Female
  Weight: 54.6 kg

DRUGS (3)
  1. HUMIRA [Suspect]
     Active Substance: ADALIMUMAB
     Indication: CROHN^S DISEASE
     Dosage: LOADING DOSE
     Route: 058
     Dates: start: 20200514, end: 20200514
  2. HUMIRA [Suspect]
     Active Substance: ADALIMUMAB
     Route: 058
  3. PREDNISOLONE. [Concomitant]
     Active Substance: PREDNISOLONE
     Indication: CROHN^S DISEASE
     Route: 048
     Dates: start: 20200320, end: 20200424

REACTIONS (8)
  - Rectal discharge [Recovering/Resolving]
  - Illness [Recovered/Resolved]
  - Intestinal mass [Recovering/Resolving]
  - Wound complication [Recovered/Resolved]
  - Anal inflammation [Recovering/Resolving]
  - Surgery [Unknown]
  - Fistula [Recovered/Resolved]
  - Wound [Not Recovered/Not Resolved]

NARRATIVE: CASE EVENT DATE: 2020
